FAERS Safety Report 25127178 (Version 7)
Quarter: 2025Q3

REPORT INFORMATION
  Report Type: Report from Study
  Country: US (occurrence: US)
  Receive Date: 20250327
  Receipt Date: 20250708
  Transmission Date: 20251020
  Serious: Yes (Other)
  Sender: SUNOVION
  Company Number: US-SUMITOMO PHARMA SWITZERLAND GMBH-2025SPA003318

PATIENT

DRUGS (4)
  1. ORGOVYX [Suspect]
     Active Substance: RELUGOLIX
     Indication: Prostate cancer
     Route: 048
  2. ORGOVYX [Suspect]
     Active Substance: RELUGOLIX
     Dosage: 120 MG, QD
     Route: 048
     Dates: start: 20250225
  3. ORGOVYX [Suspect]
     Active Substance: RELUGOLIX
     Route: 048
     Dates: start: 20250225
  4. XTANDI [Concomitant]
     Active Substance: ENZALUTAMIDE
     Indication: Prostate cancer
     Dosage: 160 MG, QD
     Route: 048
     Dates: start: 20250414

REACTIONS (16)
  - Metastases to spine [Unknown]
  - Hernia [Recovered/Resolved]
  - Depressed level of consciousness [Unknown]
  - Sleep disorder [Recovered/Resolved]
  - Pollakiuria [Unknown]
  - Nocturia [Unknown]
  - Restlessness [Unknown]
  - Blood pressure diastolic increased [Unknown]
  - Restless legs syndrome [Unknown]
  - Blood pressure increased [Unknown]
  - Pain [Unknown]
  - Anxiety [Unknown]
  - Muscle atrophy [Unknown]
  - Mobility decreased [Unknown]
  - Fatigue [Unknown]
  - Hot flush [Recovering/Resolving]

NARRATIVE: CASE EVENT DATE: 20250301
